FAERS Safety Report 7944172-0 (Version None)
Quarter: 2011Q4

REPORT INFORMATION
  Report Type: 
  Country: None (occurrence: None)
  Receive Date: 20111129
  Receipt Date: 20111118
  Transmission Date: 20120403
  Serious: Yes (Hospitalization)
  Sender: FDA-Public Use
  Company Number: US-BIOGENIDEC-2011BI033599

PATIENT
  Age: 58 Year
  Sex: Male

DRUGS (2)
  1. TYSABRI [Suspect]
     Indication: MULTIPLE SCLEROSIS
     Route: 042
     Dates: start: 20110615, end: 20110713
  2. TYSABRI [Suspect]
     Route: 042
     Dates: start: 20071003, end: 20100929

REACTIONS (3)
  - BALANCE DISORDER [None]
  - ATROPHY [None]
  - HAEMORRHAGIC STROKE [None]
